FAERS Safety Report 4766556-4 (Version None)
Quarter: 2005Q3

REPORT INFORMATION
  Report Type: 
  Country: None (occurrence: None)
  Receive Date: 20050908
  Receipt Date: 20050829
  Transmission Date: 20060218
  Serious: Yes (Other)
  Sender: FDA-Public Use
  Company Number: 217279

PATIENT
  Age: 19 Year
  Sex: Male
  Weight: 79.6 kg

DRUGS (4)
  1. NUTROPIN AQ [Suspect]
     Indication: HYPOPITUITARISM
     Dosage: 0.4 MG, QD, SUBCUTANEOUS
     Route: 058
  2. SYNTHROID [Concomitant]
  3. DEXAMETHASONE [Concomitant]
  4. DEPOTEST (TESTOSTERONE CYPIONATE) [Concomitant]

REACTIONS (1)
  - WEIGHT DECREASED [None]
